FAERS Safety Report 6638809-6 (Version None)
Quarter: 2010Q1

REPORT INFORMATION
  Report Type: 
  Country: None (occurrence: None)
  Receive Date: 20100317
  Receipt Date: 20100304
  Transmission Date: 20100710
  Serious: Yes (Other)
  Sender: FDA-Public Use
  Company Number: US-PFIZER INC-2010029256

PATIENT
  Sex: Female
  Weight: 107 kg

DRUGS (9)
  1. NEURONTIN [Suspect]
     Indication: MUSCLE SPASMS
     Dosage: 300 MG, 2X/DAY
     Route: 048
     Dates: start: 20061122, end: 20070101
  2. NEURONTIN [Suspect]
     Indication: PAIN IN EXTREMITY
  3. CELEBREX [Suspect]
     Indication: ARTHRITIS
     Dosage: 200 MG, 1X/DAY
     Route: 048
     Dates: start: 20080101
  4. CELEBREX [Suspect]
     Indication: BACK DISORDER
  5. DETROL LA [Suspect]
     Dosage: UNK
  6. LIPITOR [Suspect]
     Indication: BLOOD CHOLESTEROL INCREASED
     Dosage: 40 MG, UNK
  7. CYMBALTA [Concomitant]
     Dosage: UNK
  8. GLUCOPHAGE [Concomitant]
     Dosage: UNK
  9. ACETYLSALICYLIC ACID [Concomitant]
     Dosage: UNK, DAILY

REACTIONS (4)
  - ACTIVITIES OF DAILY LIVING IMPAIRED [None]
  - DIABETES MELLITUS [None]
  - HEART RATE IRREGULAR [None]
  - SLEEP APNOEA SYNDROME [None]
